FAERS Safety Report 16307180 (Version 2)
Quarter: 2019Q2

REPORT INFORMATION
  Report Type: Spontaneous
  Country: US (occurrence: US)
  Receive Date: 20190514
  Receipt Date: 20190518
  Transmission Date: 20190711
  Serious: Yes (Other)
  Sender: FDA-Public Use
  Company Number: US-AUROBINDO-AUR-APL-2019-025563

PATIENT

DRUGS (20)
  1. PREDNISONE. [Suspect]
     Active Substance: PREDNISONE
     Indication: CHEMOTHERAPY
  2. CYCLOPHOSPHAMIDE. [Suspect]
     Active Substance: CYCLOPHOSPHAMIDE
     Indication: CHEMOTHERAPY
  3. CYTARABINE. [Suspect]
     Active Substance: CYTARABINE
     Indication: PRODUCT USED FOR UNKNOWN INDICATION
     Dosage: 70 MILLIGRAM
     Route: 065
  4. METHOTREXATE. [Suspect]
     Active Substance: METHOTREXATE
     Indication: PRODUCT USED FOR UNKNOWN INDICATION
     Dosage: UNK
     Route: 065
  5. ROMIPLOSTIM [Suspect]
     Active Substance: ROMIPLOSTIM
     Indication: PRODUCT USED FOR UNKNOWN INDICATION
     Dosage: 100 MICROGRAM, 7 DAYS (A TOTAL OF FIVE DOSES )
     Route: 065
  6. PREDNISONE. [Suspect]
     Active Substance: PREDNISONE
     Indication: PRODUCT USED FOR UNKNOWN INDICATION
     Dosage: 60 MILLIGRAM/SQ. METER, DAILY (DAILY DIVIDED IN TWO DOSES)
     Route: 065
  7. PEGASPARGASE [Suspect]
     Active Substance: PEGASPARGASE
     Indication: PRODUCT USED FOR UNKNOWN INDICATION
     Dosage: 2000 UNIT/M2
     Route: 065
  8. CYTARABINE. [Suspect]
     Active Substance: CYTARABINE
     Indication: CHEMOTHERAPY
  9. DOXORUBICIN [Suspect]
     Active Substance: DOXORUBICIN
     Indication: PRODUCT USED FOR UNKNOWN INDICATION
     Dosage: UNK
     Route: 065
  10. MERCAPTOPURINE. [Suspect]
     Active Substance: MERCAPTOPURINE
     Indication: PRODUCT USED FOR UNKNOWN INDICATION
     Dosage: UNK
     Route: 065
  11. DEXAMETHASONE. [Suspect]
     Active Substance: DEXAMETHASONE
     Indication: PRODUCT USED FOR UNKNOWN INDICATION
     Dosage: UNK
     Route: 065
  12. CYCLOPHOSPHAMIDE. [Suspect]
     Active Substance: CYCLOPHOSPHAMIDE
     Indication: PRODUCT USED FOR UNKNOWN INDICATION
     Dosage: UNK
     Route: 065
  13. DARBEPOETIN ALFA [Suspect]
     Active Substance: DARBEPOETIN ALFA
     Indication: PRODUCT USED FOR UNKNOWN INDICATION
     Dosage: 100 MICROGRAM, 7 DAYS (A TOTAL OF FIVE DOSES )
     Route: 065
  14. DARBEPOETIN ALFA [Suspect]
     Active Substance: DARBEPOETIN ALFA
     Indication: CHEMOTHERAPY
  15. ROMIPLOSTIM [Suspect]
     Active Substance: ROMIPLOSTIM
     Indication: CHEMOTHERAPY
     Dosage: 1 MICROGRAM/KILOGRAM
     Route: 065
  16. THIOGUANINE [Suspect]
     Active Substance: THIOGUANINE
     Indication: PRODUCT USED FOR UNKNOWN INDICATION
     Dosage: UNK
     Route: 065
  17. DAUNORUBICIN [Suspect]
     Active Substance: DAUNORUBICIN
     Indication: CHEMOTHERAPY
     Dosage: 25 MILLIGRAM/SQ. METER GIVEN ON DAYS 15 AND 22
     Route: 065
  18. VINCRISTINE SULFATE. [Suspect]
     Active Substance: VINCRISTINE SULFATE
     Indication: PRODUCT USED FOR UNKNOWN INDICATION
     Dosage: 2 MILLIGRAM, EVERY WEEK
     Route: 065
  19. PEGASPARGASE [Suspect]
     Active Substance: PEGASPARGASE
     Indication: CHEMOTHERAPY
  20. RITUXIMAB. [Suspect]
     Active Substance: RITUXIMAB
     Indication: CHEMOTHERAPY
     Dosage: 375 MILLIGRAM/SQ. METER, EVERY WEEK
     Route: 065

REACTIONS (4)
  - Anaemia [Unknown]
  - Thrombocytopenia [Recovered/Resolved]
  - Neuropathy peripheral [Unknown]
  - Febrile neutropenia [Unknown]
